FAERS Safety Report 9581966 (Version 2)
Quarter: 2019Q4

REPORT INFORMATION
  Report Type: Report from Study
  Country: FR (occurrence: FR)
  Receive Date: 20131002
  Receipt Date: 20191002
  Transmission Date: 20200122
  Serious: Yes (Death, Other)
  Sender: FDA-Public Use
  Company Number: FR-OTSUKA-US-2013-11795

PATIENT
  Age: 60 Year
  Sex: Female

DRUGS (8)
  1. UROMITEXAN [Suspect]
     Active Substance: MESNA
     Indication: CENTRAL NERVOUS SYSTEM LYMPHOMA
     Dosage: 1020 MG, QD (1/DAY)
     Route: 042
     Dates: start: 20130115, end: 20130116
  2. ACICLOVIR [Concomitant]
     Active Substance: ACYCLOVIR
     Indication: PRODUCT USED FOR UNKNOWN INDICATION
     Dosage: UNK
     Route: 065
  3. ONDANSETRON [Concomitant]
     Active Substance: ONDANSETRON
     Indication: PRODUCT USED FOR UNKNOWN INDICATION
     Dosage: UNK
     Route: 065
  4. ENDOXAN [Suspect]
     Active Substance: CYCLOPHOSPHAMIDE
     Indication: CENTRAL NERVOUS SYSTEM LYMPHOMA
     Dosage: 5100 MG, QD (1/DAY)
     Route: 042
     Dates: start: 20130115, end: 20130116
  5. RIVOTRIL [Suspect]
     Active Substance: CLONAZEPAM
     Indication: CENTRAL NERVOUS SYSTEM LYMPHOMA
     Dosage: 2 MG, UNK
     Route: 042
     Dates: start: 20130112, end: 20130115
  6. HEPARIN [Concomitant]
     Active Substance: HEPARIN SODIUM
     Indication: PRODUCT USED FOR UNKNOWN INDICATION
     Dosage: UNK
     Route: 065
  7. THIOTEPA. [Suspect]
     Active Substance: THIOTEPA
     Indication: CENTRAL NERVOUS SYSTEM LYMPHOMA
     Dosage: 465 MG, UNK
     Route: 042
     Dates: start: 20130109, end: 20130111
  8. BUSULFAN. [Suspect]
     Active Substance: BUSULFAN
     Indication: CENTRAL NERVOUS SYSTEM LYMPHOMA
     Dosage: 272 MG, UNK
     Route: 042
     Dates: start: 20130112, end: 20130114

REACTIONS (3)
  - Mucosal inflammation [Unknown]
  - Cardiac arrest [Fatal]
  - Neutropenia [Unknown]

NARRATIVE: CASE EVENT DATE: 20130124
